FAERS Safety Report 16896182 (Version 1)
Quarter: 2019Q4

REPORT INFORMATION
  Report Type: Spontaneous
  Country: US (occurrence: US)
  Receive Date: 20191008
  Receipt Date: 20191008
  Transmission Date: 20200122
  Serious: No
  Sender: FDA-Public Use
  Company Number: US-ELI_LILLY_AND_COMPANY-US201910001706

PATIENT
  Sex: Female

DRUGS (2)
  1. EMGALITY [Suspect]
     Active Substance: GALCANEZUMAB-GNLM
     Indication: PRODUCT USED FOR UNKNOWN INDICATION
     Dosage: 1 DOSAGE FORM, UNKNOWN
     Route: 065
     Dates: start: 20190923
  2. TOPAMAX [Concomitant]
     Active Substance: TOPIRAMATE

REACTIONS (11)
  - Somnolence [Unknown]
  - Abdominal discomfort [Unknown]
  - Sinus disorder [Unknown]
  - Euphoric mood [Unknown]
  - Lip disorder [Unknown]
  - Fatigue [Unknown]
  - Movement disorder [Unknown]
  - Hypoaesthesia oral [Unknown]
  - Dizziness [Unknown]
  - Feeling abnormal [Unknown]
  - Swelling face [Unknown]

NARRATIVE: CASE EVENT DATE: 20190923
